FAERS Safety Report 8503774-3 (Version None)
Quarter: 2012Q3

REPORT INFORMATION
  Report Type: 
  Country: None (occurrence: None)
  Receive Date: 20120711
  Receipt Date: 20120529
  Transmission Date: 20120928
  Serious: Yes (Hospitalization)
  Sender: FDA-Public Use
  Company Number: VN-BAXTER-2012BAX010743

PATIENT
  Sex: Female

DRUGS (1)
  1. DIANEAL [Suspect]
     Route: 033
     Dates: start: 20090730

REACTIONS (4)
  - PERITONITIS BACTERIAL [None]
  - PYREXIA [None]
  - DIARRHOEA [None]
  - VOMITING [None]
